FAERS Safety Report 9193531 (Version 1)
Quarter: 2013Q1

REPORT INFORMATION
  Report Type: Spontaneous
  Country: US (occurrence: US)
  Receive Date: 20130327
  Receipt Date: 20130327
  Transmission Date: 20140127
  Serious: Yes (Other)
  Sender: FDA-Public Use
  Company Number: US-TEVA-393626USA

PATIENT
  Sex: Female
  Weight: 49.94 kg

DRUGS (3)
  1. QVAR [Suspect]
     Indication: ASTHMA
     Dosage: BID
     Route: 055
     Dates: start: 2005
  2. PROAIR HFA [Suspect]
     Indication: ASTHMA
     Dosage: PRN
     Route: 055
     Dates: start: 2005
  3. FLUTICASONE NSL [Concomitant]
     Indication: HYPERSENSITIVITY
     Dosage: 2 SPRAYS/NOSTRIL BID
     Route: 045

REACTIONS (2)
  - Steroid withdrawal syndrome [Not Recovered/Not Resolved]
  - Asthma [Not Recovered/Not Resolved]
